FAERS Safety Report 7378048-7 (Version None)
Quarter: 2011Q1

REPORT INFORMATION
  Report Type: 
  Country: None (occurrence: None)
  Receive Date: 20110317
  Receipt Date: 20110228
  Transmission Date: 20110831
  Serious: Yes (Hospitalization)
  Sender: FDA-Public Use
  Company Number: JPI-P-014055

PATIENT
  Age: 35 Year
  Sex: Female

DRUGS (6)
  1. AMPHETAMINE, DEXTROAMPHETAMINE MIXED SALTS [Concomitant]
  2. ARMODAFINIL [Concomitant]
  3. CITALOPRAM HYDROBROMIDE [Concomitant]
  4. XYREM [Suspect]
     Indication: NARCOLEPSY
     Dosage: SEE IMAGE
     Route: 048
     Dates: start: 20100927
  5. XYREM [Suspect]
     Indication: NARCOLEPSY
     Dosage: SEE IMAGE
     Route: 048
     Dates: start: 20110224
  6. XYREM [Suspect]
     Indication: NARCOLEPSY
     Dosage: SEE IMAGE
     Route: 048
     Dates: start: 20101027, end: 20110222

REACTIONS (7)
  - FATIGUE [None]
  - NASOPHARYNGITIS [None]
  - DEHYDRATION [None]
  - KIDNEY INFECTION [None]
  - FEELING OF BODY TEMPERATURE CHANGE [None]
  - FEELING ABNORMAL [None]
  - CULTURE URINE POSITIVE [None]
